FAERS Safety Report 8978376 (Version 3)
Quarter: 2013Q1

REPORT INFORMATION
  Report Type: Report from Study
  Country: GB (occurrence: GB)
  Receive Date: 20121220
  Receipt Date: 20130116
  Transmission Date: 20140127
  Serious: Yes (Death, Hospitalization)
  Sender: FDA-Public Use
  Company Number: GB-ELI_LILLY_AND_COMPANY-GB201208007518

PATIENT
  Age: 29 Year
  Sex: Male
  Weight: 74.4 kg

DRUGS (7)
  1. PEMETREXED [Suspect]
     Indication: NON-SMALL CELL LUNG CANCER METASTATIC
     Dosage: 500 MG/M2, DAY 1 EVERY 21 DAYS
     Route: 042
     Dates: start: 20120802
  2. FOLIC ACID [Concomitant]
     Indication: SUPPLEMENTATION THERAPY
     Dosage: UNK
     Dates: start: 20120801
  3. VITAMIN B12 [Concomitant]
     Indication: SUPPLEMENTATION THERAPY
     Dosage: UNK
     Dates: start: 20120801, end: 20120801
  4. DEXAMETHASONE [Concomitant]
     Indication: PROPHYLAXIS
     Dosage: UNK
     Dates: start: 20120801
  5. LANSOPRAZOLE [Concomitant]
     Indication: PROPHYLAXIS
     Dosage: UNK
     Dates: start: 201204
  6. ORAMORPH [Concomitant]
     Indication: CHEST PAIN
     Dosage: UNK
     Dates: start: 201204
  7. CLEXANE [Concomitant]
     Indication: EMBOLISM
     Dosage: UNK
     Dates: start: 20120808

REACTIONS (2)
  - Atypical pneumonia [Fatal]
  - Lower respiratory tract infection [Recovered/Resolved]
